FAERS Safety Report 18239275 (Version 7)
Quarter: 2021Q1

REPORT INFORMATION
  Report Type: Spontaneous
  Country: US (occurrence: US)
  Receive Date: 20200907
  Receipt Date: 20210329
  Transmission Date: 20210419
  Serious: Yes (Other)
  Sender: FDA-Public Use
  Company Number: US-PFIZER INC-2020344410

PATIENT
  Age: 59 Year
  Sex: Female
  Weight: 78.93 kg

DRUGS (3)
  1. XELJANZ XR [Suspect]
     Active Substance: TOFACITINIB CITRATE
     Indication: RHEUMATOID ARTHRITIS
     Dosage: 11 MG, DAILY
     Route: 048
     Dates: start: 20200908
  2. XELJANZ XR [Suspect]
     Active Substance: TOFACITINIB CITRATE
     Dosage: 11 MG, 1X/DAY
     Route: 048
     Dates: start: 2021
  3. XELJANZ XR [Suspect]
     Active Substance: TOFACITINIB CITRATE
     Dosage: 11 MG, 1X/DAY
     Route: 048
     Dates: start: 20200909, end: 202101

REACTIONS (8)
  - Rheumatoid arthritis [Unknown]
  - Pain [Unknown]
  - Peripheral swelling [Unknown]
  - Blood pressure increased [Unknown]
  - Drug effect less than expected [Unknown]
  - Arthralgia [Not Recovered/Not Resolved]
  - Weight increased [Unknown]
  - Joint swelling [Not Recovered/Not Resolved]
